FAERS Safety Report 15703072 (Version 1)
Quarter: 2018Q4

REPORT INFORMATION
  Report Type: Spontaneous
  Country: PL (occurrence: PL)
  Receive Date: 20181210
  Receipt Date: 20181210
  Transmission Date: 20190205
  Serious: Yes (Death, Other)
  Sender: FDA-Public Use
  Company Number: PL-TEVA-2018-PL-985742

PATIENT
  Age: 61 Year
  Sex: Male

DRUGS (5)
  1. KETOCONAZOLE. [Suspect]
     Active Substance: KETOCONAZOLE
     Dosage: 300 TO 600MG PER DAY
     Route: 065
  2. TEMOZOLOMIDE. [Suspect]
     Active Substance: TEMOZOLOMIDE
     Indication: PITUITARY TUMOUR BENIGN
     Dosage: 150-200MG/M2 ONCE DAILY IN THE MORNING FOR FIRST FIVE CONSECUTIVE DAYS OF A 28 DAY CYCLE
     Route: 065
     Dates: start: 20150424, end: 201512
  3. ONDANSETRON [Concomitant]
     Active Substance: ONDANSETRON
     Indication: PROPHYLAXIS OF NAUSEA AND VOMITING
     Route: 065
  4. TRIMETHOPRIM-SULFAMETHOXAZOLE [Concomitant]
     Active Substance: SULFAMETHOXAZOLE\TRIMETHOPRIM
     Indication: ANTIBIOTIC PROPHYLAXIS
     Route: 065
  5. PASIREOTIDE. [Suspect]
     Active Substance: PASIREOTIDE
     Indication: PITUITARY TUMOUR BENIGN
     Route: 058
     Dates: start: 20160201

REACTIONS (4)
  - Diabetes mellitus [Unknown]
  - Nausea [Unknown]
  - Hepatic function abnormal [Unknown]
  - Deafness [Unknown]

NARRATIVE: CASE EVENT DATE: 2015
